FAERS Safety Report 19186811 (Version 1)
Quarter: 2021Q2

REPORT INFORMATION
  Report Type: Spontaneous
  Country: US (occurrence: US)
  Receive Date: 20210427
  Receipt Date: 20210427
  Transmission Date: 20210717
  Serious: Yes (Hospitalization, Other)
  Sender: FDA-Public Use
  Company Number: US-SUNOVION-2021SUN001551

PATIENT
  Age: 21 Year

DRUGS (6)
  1. LATUDA [Suspect]
     Active Substance: LURASIDONE HYDROCHLORIDE
     Indication: SCHIZOPHRENIA
     Dosage: UNK
     Route: 048
     Dates: start: 201702
  2. GEODON [Suspect]
     Active Substance: ZIPRASIDONE HYDROCHLORIDE\ZIPRASIDONE MESYLATE
     Dosage: UNK, QD
  3. LATUDA [Suspect]
     Active Substance: LURASIDONE HYDROCHLORIDE
     Dosage: 80 MG
     Route: 048
     Dates: end: 201803
  4. INVEGA SUSTENNA [Suspect]
     Active Substance: PALIPERIDONE PALMITATE
     Dosage: UNK
  5. LATUDA [Suspect]
     Active Substance: LURASIDONE HYDROCHLORIDE
     Dosage: 40 MG
     Route: 048
     Dates: start: 201803, end: 201806
  6. GEODON [Suspect]
     Active Substance: ZIPRASIDONE HYDROCHLORIDE\ZIPRASIDONE MESYLATE
     Dosage: UNK, BID

REACTIONS (15)
  - Hallucination, auditory [Unknown]
  - Schizophrenia [Unknown]
  - Psychotic symptom [Unknown]
  - Mood swings [Unknown]
  - Thinking abnormal [Unknown]
  - Cognitive disorder [Unknown]
  - Psychotic disorder [Unknown]
  - Mental impairment [Unknown]
  - Dopamine dysregulation syndrome [Unknown]
  - Amnesia [Unknown]
  - Flat affect [Unknown]
  - Energy increased [Unknown]
  - Delusion [Unknown]
  - Irritability [Unknown]
  - Emotional disorder [Unknown]

NARRATIVE: CASE EVENT DATE: 201807
